FAERS Safety Report 10827906 (Version 4)
Quarter: 2015Q2

REPORT INFORMATION
  Report Type: Spontaneous
  Country: JP (occurrence: JP)
  Receive Date: 20150219
  Receipt Date: 20150619
  Transmission Date: 20150821
  Serious: Yes (Death, Life-Threatening, Hospitalization)
  Sender: FDA-Public Use
  Company Number: JP-ROCHE-1541071

PATIENT
  Age: 61 Year
  Sex: Male
  Weight: 62 kg

DRUGS (13)
  1. VALPROATE SODIUM. [Suspect]
     Active Substance: VALPROATE SODIUM
     Indication: SEIZURE
     Route: 048
     Dates: start: 20141020, end: 20150219
  2. NIDRAN [Suspect]
     Active Substance: NIMUSTINE
     Indication: GLIOBLASTOMA
     Route: 041
     Dates: start: 20141206, end: 20141206
  3. BLOPRESS [Concomitant]
     Active Substance: CANDESARTAN CILEXETIL
     Indication: HYPERTENSION
     Route: 048
     Dates: start: 20130524, end: 20150108
  4. NIDRAN [Suspect]
     Active Substance: NIMUSTINE
     Indication: GLIOBLASTOMA
     Route: 041
     Dates: start: 20150121, end: 20150121
  5. TSUMURA SHAKUYAKUKANZOTO [Concomitant]
     Active Substance: HERBALS
     Indication: MUSCLE SPASMS
     Dosage: EXTRACT GRANULES FOR ETHICAL USE
     Route: 048
     Dates: start: 20130524, end: 20150219
  6. AVASTIN [Suspect]
     Active Substance: BEVACIZUMAB
     Indication: GLIOBLASTOMA
     Route: 041
     Dates: start: 20150107, end: 20150107
  7. GASTER [Concomitant]
     Active Substance: FAMOTIDINE
     Indication: PROPHYLAXIS AGAINST GASTROINTESTINAL ULCER
     Route: 048
     Dates: start: 20141007, end: 20150219
  8. RINDERON V [Concomitant]
     Active Substance: BETAMETHASONE VALERATE
     Indication: BRAIN OEDEMA
     Route: 042
     Dates: start: 20150117, end: 20150120
  9. AVASTIN [Suspect]
     Active Substance: BEVACIZUMAB
     Indication: GLIOBLASTOMA
     Route: 041
     Dates: start: 20141206, end: 20141206
  10. AVASTIN [Suspect]
     Active Substance: BEVACIZUMAB
     Indication: GLIOBLASTOMA
     Route: 041
     Dates: start: 20150121, end: 20150121
  11. AMLODIN [Concomitant]
     Active Substance: AMLODIPINE BESYLATE
     Indication: HYPERTENSION
     Dosage: BRABD NAME: AMLODIN OD
     Route: 048
     Dates: start: 20130524, end: 20150123
  12. AVASTIN [Suspect]
     Active Substance: BEVACIZUMAB
     Indication: GLIOBLASTOMA
     Route: 041
     Dates: start: 20141222, end: 20141222
  13. RINDERON V [Concomitant]
     Active Substance: BETAMETHASONE VALERATE
     Indication: BRAIN OEDEMA
     Route: 042
     Dates: start: 20141203, end: 20150116

REACTIONS (6)
  - Hepatic function abnormal [Recovering/Resolving]
  - Toxic epidermal necrolysis [Not Recovered/Not Resolved]
  - Platelet count decreased [Unknown]
  - Malignant glioma [Fatal]
  - Hyponatraemia [Recovering/Resolving]
  - Pyrexia [Unknown]

NARRATIVE: CASE EVENT DATE: 2015
